FAERS Safety Report 20582916 (Version 1)
Quarter: 2022Q1

REPORT INFORMATION
  Report Type: Spontaneous
  Country: NL (occurrence: NL)
  Receive Date: 20220311
  Receipt Date: 20220311
  Transmission Date: 20220423
  Serious: Yes (Death, Other)
  Sender: FDA-Public Use
  Company Number: None

PATIENT
  Sex: Male

DRUGS (5)
  1. CITALOPRAM HYDROBROMIDE [Suspect]
     Active Substance: CITALOPRAM HYDROBROMIDE
     Indication: Depression
     Dosage: 1DD1 OM 21:00 ^S AVONDS (1DD1 AT 21:00 IN THE EVENING)
     Route: 065
     Dates: start: 202202
  2. QUETIAPINE [Suspect]
     Active Substance: QUETIAPINE
     Indication: Anxiety
     Dosage: 2DD1, ^S OCHTENDS EN ^S AVONDS (2DD1, MORNING AND EVENING)
     Route: 065
  3. AMLODIPINE [Concomitant]
     Active Substance: AMLODIPINE BESYLATE
     Indication: Product used for unknown indication
     Dosage: TABLET, 5 MG (MILLIGRAM)
     Route: 065
  4. TEMAZEPAM [Concomitant]
     Active Substance: TEMAZEPAM
     Indication: Product used for unknown indication
     Dosage: CAPSULE, 20 MG (MILLIGRAM)
     Route: 065
  5. VALPROINEZUUR TABLET MSR 300MG [Concomitant]
     Indication: Product used for unknown indication
     Dosage: MAAGSAPRESISTENTE TABLET, 300 MG (MILLIGRAM) (GASTRO-RESISTANT TABLET, 300 MG (MILLIGRAMS))
     Route: 065

REACTIONS (2)
  - Suicidal ideation [Fatal]
  - Loss of libido [Not Recovered/Not Resolved]

NARRATIVE: CASE EVENT DATE: 20220201
